FAERS Safety Report 15756203 (Version 1)
Quarter: 2018Q4

REPORT INFORMATION
  Report Type: Spontaneous
  Country: US (occurrence: US)
  Receive Date: 20181218
  Receipt Date: 20181218
  Transmission Date: 20190205
  Serious: No
  Sender: FDA-Public Use
  Company Number: None

PATIENT

DRUGS (1)
  1. ALYACEN [Suspect]
     Active Substance: ETHINYL ESTRADIOL\NORETHINDRONE

REACTIONS (4)
  - Myocardial infarction [None]
  - Wrong technique in product usage process [None]
  - Intentional product misuse [None]
  - Pulmonary embolism [None]

NARRATIVE: CASE EVENT DATE: 2017
